FAERS Safety Report 15156263 (Version 1)
Quarter: 2018Q3

REPORT INFORMATION
  Report Type: Report from Study
  Country: US (occurrence: US)
  Receive Date: 20180717
  Receipt Date: 20180717
  Transmission Date: 20181010
  Serious: Yes (Other)
  Sender: FDA-Public Use
  Company Number: US-SHIRE-US201824283

PATIENT
  Age: 58 Year
  Sex: Female
  Weight: 68.76 kg

DRUGS (1)
  1. GATTEX [Suspect]
     Active Substance: TEDUGLUTIDE\WATER
     Indication: SHORT-BOWEL SYNDROME
     Dosage: 0.35 ML (3.5 MG), 1X/DAY:QD
     Route: 058
     Dates: start: 20180524, end: 20180601

REACTIONS (3)
  - Vomiting [Unknown]
  - Hypokalaemia [Unknown]
  - Nausea [Unknown]

NARRATIVE: CASE EVENT DATE: 20180601
